FAERS Safety Report 5830000-6 (Version None)
Quarter: 2008Q3

REPORT INFORMATION
  Report Type: 
  Country: None (occurrence: None)
  Receive Date: 20080801
  Receipt Date: 20080723
  Transmission Date: 20090109
  Serious: Yes (Other)
  Sender: FDA-Public Use
  Company Number: US-ROCHE-553213

PATIENT
  Age: 49 Year
  Sex: Male

DRUGS (7)
  1. PEGASYS [Suspect]
     Dosage: FIRST COURSE OF TREATMENT
     Route: 065
  2. PEGASYS [Suspect]
     Dosage: SECOND COURSE OF TREATMENT
     Route: 065
     Dates: start: 20070801
  3. RIBAVIRIN [Suspect]
     Dosage: FIRST COURSE OF TREATMENT
     Route: 065
  4. RIBAVIRIN [Suspect]
     Dosage: SECOND COURSE OF TREATMENT
     Route: 065
     Dates: start: 20070801
  5. ATIVAN [Concomitant]
     Dates: start: 20070801
  6. NEXIUM [Concomitant]
     Dates: start: 20070801
  7. PREDNISONE [Concomitant]
     Dates: start: 20070801

REACTIONS (12)
  - ABDOMINAL PAIN UPPER [None]
  - ANOREXIA [None]
  - CHILLS [None]
  - HAEMOLYSIS [None]
  - HEPATIC CIRRHOSIS [None]
  - INJECTION SITE ERYTHEMA [None]
  - INSOMNIA [None]
  - PYREXIA [None]
  - RASH ERYTHEMATOUS [None]
  - UMBILICAL ERYTHEMA [None]
  - VOMITING [None]
  - WEIGHT DECREASED [None]
